FAERS Safety Report 17589938 (Version 2)
Quarter: 2021Q2

REPORT INFORMATION
  Report Type: Spontaneous
  Country: US (occurrence: US)
  Receive Date: 20200327
  Receipt Date: 20210413
  Transmission Date: 20210716
  Serious: No
  Sender: FDA-Public Use
  Company Number: US-ALLERGAN-2010057US

PATIENT
  Sex: Female

DRUGS (2)
  1. LATISSE [Suspect]
     Active Substance: BIMATOPROST
     Indication: GROWTH OF EYELASHES
     Dosage: 2 GTT, QHS (1 GTT IN CAP; 1 GTT TO EACH BRUSH)
     Route: 003
     Dates: end: 20200303
  2. BIRTH CONTROL PILLS [Concomitant]
     Active Substance: UNSPECIFIED INGREDIENT
     Indication: CONTRACEPTION

REACTIONS (5)
  - Erythema of eyelid [Not Recovered/Not Resolved]
  - Ocular hyperaemia [Not Recovered/Not Resolved]
  - Pruritus [Not Recovered/Not Resolved]
  - Wrong technique in product usage process [Unknown]
  - Eye pruritus [Not Recovered/Not Resolved]
